FAERS Safety Report 11499990 (Version 1)
Quarter: 2015Q3

REPORT INFORMATION
  Report Type: Spontaneous
  Country: US (occurrence: None)
  Receive Date: 20150911
  Receipt Date: 20150911
  Transmission Date: 20151125
  Serious: No
  Sender: FDA-Public Use
  Company Number: None

PATIENT
  Age: 56 Year
  Sex: Female

DRUGS (7)
  1. AFINITOR [Suspect]
     Active Substance: EVEROLIMUS
     Indication: BREAST CANCER
     Route: 048
     Dates: start: 20150728, end: 20150813
  2. LISINOPRIL. [Concomitant]
     Active Substance: LISINOPRIL
  3. AFINITOR [Suspect]
     Active Substance: EVEROLIMUS
     Indication: HEPATIC CANCER
     Route: 048
     Dates: start: 20150728, end: 20150813
  4. AMOXICILLIN. [Concomitant]
     Active Substance: AMOXICILLIN
  5. ACYCLOVIR. [Concomitant]
     Active Substance: ACYCLOVIR
  6. EXEMESTANE. [Concomitant]
     Active Substance: EXEMESTANE
  7. VAGIFEM [Concomitant]
     Active Substance: ESTRADIOL

REACTIONS (1)
  - Stomatitis [None]

NARRATIVE: CASE EVENT DATE: 20150813
